FAERS Safety Report 15676733 (Version 1)
Quarter: 2018Q4

REPORT INFORMATION
  Report Type: Report from Study
  Country: GB (occurrence: GB)
  Receive Date: 20181130
  Receipt Date: 20181130
  Transmission Date: 20190205
  Serious: Yes (Other)
  Sender: FDA-Public Use
  Company Number: GB-CELGENEUS-GBR-20181005361

PATIENT
  Age: 76 Year
  Sex: Female
  Weight: 82 kg

DRUGS (17)
  1. CC-4047 [Suspect]
     Active Substance: POMALIDOMIDE
     Indication: RENAL CELL CARCINOMA
  2. CC-4047 [Suspect]
     Active Substance: POMALIDOMIDE
     Indication: BRAIN NEOPLASM
  3. CC-4047 [Suspect]
     Active Substance: POMALIDOMIDE
     Indication: EPENDYMOMA
  4. DEXAMETHASONE. [Suspect]
     Active Substance: DEXAMETHASONE
     Route: 048
     Dates: start: 20130510, end: 20131024
  5. BORTEZOMIB. [Suspect]
     Active Substance: BORTEZOMIB
     Indication: PLASMA CELL MYELOMA
     Route: 058
     Dates: start: 20160719, end: 20160809
  6. CC-4047 [Suspect]
     Active Substance: POMALIDOMIDE
     Indication: GLIOMA
  7. CC-4047 [Suspect]
     Active Substance: POMALIDOMIDE
     Indication: MEDULLOBLASTOMA
  8. CC-5013 [Suspect]
     Active Substance: LENALIDOMIDE
     Indication: PLASMA CELL MYELOMA
     Dosage: 10 MILLIGRAM
     Route: 048
     Dates: start: 20131108, end: 20160602
  9. DEXAMETHASONE. [Suspect]
     Active Substance: DEXAMETHASONE
     Route: 048
     Dates: start: 20171219
  10. CC-4047 [Suspect]
     Active Substance: POMALIDOMIDE
     Indication: PLASMA CELL MYELOMA
     Route: 048
     Dates: start: 20160719, end: 20160809
  11. CC-4047 [Suspect]
     Active Substance: POMALIDOMIDE
     Indication: PLASMA CELL MYELOMA
     Route: 048
     Dates: start: 20171219
  12. CC-4047 [Suspect]
     Active Substance: POMALIDOMIDE
     Indication: PROSTATE CANCER
  13. CC-4047 [Suspect]
     Active Substance: POMALIDOMIDE
     Indication: SYSTEMIC SCLEROSIS PULMONARY
  14. CC-4047 [Suspect]
     Active Substance: POMALIDOMIDE
     Indication: SCLERODERMA
  15. THALIDOMIDE [Suspect]
     Active Substance: THALIDOMIDE
     Indication: PLASMA CELL MYELOMA
     Route: 048
     Dates: start: 20130510, end: 20131024
  16. DEXAMETHASONE. [Suspect]
     Active Substance: DEXAMETHASONE
     Indication: PLASMA CELL MYELOMA
     Route: 048
     Dates: start: 20160719, end: 20160809
  17. BORTEZOMIB. [Suspect]
     Active Substance: BORTEZOMIB
     Route: 058
     Dates: start: 20161018

REACTIONS (1)
  - Basal cell carcinoma [Recovered/Resolved]

NARRATIVE: CASE EVENT DATE: 20180926
